FAERS Safety Report 19257714 (Version 3)
Quarter: 2021Q4

REPORT INFORMATION
  Report Type: Report from Study
  Country: None (occurrence: SE)
  Receive Date: 20210514
  Receipt Date: 20211006
  Transmission Date: 20220303
  Serious: Yes (Hospitalization)
  Sender: FDA-Public Use
  Company Number: SE-ABBVIE-21K-150-3873417-00

PATIENT
  Sex: Male

DRUGS (3)
  1. CARBIDOPA\LEVODOPA [Suspect]
     Active Substance: CARBIDOPA\LEVODOPA
     Indication: Parkinson^s disease
     Route: 050
     Dates: start: 20201014
  2. CARBIDOPA\LEVODOPA [Suspect]
     Active Substance: CARBIDOPA\LEVODOPA
     Dosage: CONTINUOUS DOSE DECREASED FROM 4.7 ML/H TO 4.5 ML/H. THERAPY DURATION: REMAINS AT 16H.
     Route: 050
     Dates: start: 20210422, end: 2021
  3. CARBIDOPA\LEVODOPA [Suspect]
     Active Substance: CARBIDOPA\LEVODOPA
     Dosage: CONTINUOUS DOSE DECREASED FROM 4.5 ML/H TO 4.3 ML/H.
     Route: 050
     Dates: start: 2021

REACTIONS (11)
  - Dyspnoea [Recovering/Resolving]
  - Incorrect dose administered [Recovering/Resolving]
  - Discomfort [Unknown]
  - Musculoskeletal stiffness [Not Recovered/Not Resolved]
  - Dystonia [Unknown]
  - Constipation [Not Recovered/Not Resolved]
  - Anxiety [Recovering/Resolving]
  - Hyperkinesia [Recovering/Resolving]
  - Device difficult to use [Not Recovered/Not Resolved]
  - Stress [Recovering/Resolving]
  - Anxiety disorder [Recovering/Resolving]
